FAERS Safety Report 6028435-4 (Version None)
Quarter: 2009Q1

REPORT INFORMATION
  Report Type: 
  Country: None (occurrence: None)
  Receive Date: 20090106
  Receipt Date: 20081224
  Transmission Date: 20090719
  Serious: Yes (Hospitalization)
  Sender: FDA-Public Use
  Company Number: JP-ASTRAZENECA-2008SE05743

PATIENT
  Sex: Male
  Weight: 59 kg

DRUGS (10)
  1. BLOPRESS TABLETS 8 [Suspect]
     Route: 048
     Dates: end: 20081208
  2. BLOPRESS TABLETS 8 [Suspect]
     Route: 048
     Dates: start: 20081209, end: 20081209
  3. AMLODIN [Suspect]
     Route: 048
     Dates: end: 20081208
  4. AMLODIN [Suspect]
     Route: 048
     Dates: start: 20081209, end: 20081209
  5. CARDENALIN [Suspect]
     Route: 048
     Dates: end: 20081208
  6. CARDENALIN [Suspect]
     Route: 048
     Dates: start: 20081209, end: 20081209
  7. PENTASA [Concomitant]
     Route: 048
  8. BERIZYM [Concomitant]
     Route: 048
  9. SELBEX [Concomitant]
     Route: 048
  10. MEVALOTIN [Concomitant]
     Route: 048

REACTIONS (2)
  - INTENTIONAL OVERDOSE [None]
  - RENAL FAILURE ACUTE [None]
